FAERS Safety Report 17410471 (Version 1)
Quarter: 2020Q1

REPORT INFORMATION
  Report Type: Spontaneous
  Country: IN (occurrence: IN)
  Receive Date: 20200212
  Receipt Date: 20200212
  Transmission Date: 20200409
  Serious: Yes (Hospitalization)
  Sender: FDA-Public Use
  Company Number: IN-AMNEAL PHARMACEUTICALS-2020-AMRX-00446

PATIENT
  Age: 46 Year
  Sex: Female

DRUGS (4)
  1. FOLIC ACID. [Concomitant]
     Active Substance: FOLIC ACID
     Indication: NECROTISING SCLERITIS
     Dosage: 5 MILLIGRAM
     Route: 048
  2. METHOTREXATE. [Concomitant]
     Active Substance: METHOTREXATE
     Indication: NECROTISING SCLERITIS
     Dosage: 10 MILLIGRAM, 1 /WEEK
     Route: 048
  3. TRIAMCINOLONE ACETONIDE. [Suspect]
     Active Substance: TRIAMCINOLONE ACETONIDE
     Indication: SCLERITIS
     Dosage: UNK, INJECTION
     Route: 031
  4. METHOTREXATE. [Concomitant]
     Active Substance: METHOTREXATE
     Indication: GRANULOMATOSIS WITH POLYANGIITIS
     Dosage: 20 MILLIGRAM, 1 /WEEK
     Route: 048

REACTIONS (2)
  - Necrotising scleritis [Recovering/Resolving]
  - Cataract [Recovering/Resolving]
